FAERS Safety Report 15679627 (Version 1)
Quarter: 2018Q4

REPORT INFORMATION
  Report Type: Spontaneous
  Country: GB (occurrence: GB)
  Receive Date: 20181203
  Receipt Date: 20181203
  Transmission Date: 20190205
  Serious: Yes (Other)
  Sender: FDA-Public Use
  Company Number: GB-ACCORD-094379

PATIENT
  Age: 53 Year
  Sex: Male
  Weight: 89 kg

DRUGS (1)
  1. ALLOPURINOL. [Suspect]
     Active Substance: ALLOPURINOL
     Indication: GOUT
     Route: 048
     Dates: start: 20160114, end: 20180106

REACTIONS (2)
  - Photophobia [Recovered/Resolved]
  - Dizziness [Recovered/Resolved]
